FAERS Safety Report 25106804 (Version 1)
Quarter: 2025Q1

REPORT INFORMATION
  Report Type: Spontaneous
  Country: GB (occurrence: GB)
  Receive Date: 20250321
  Receipt Date: 20250321
  Transmission Date: 20250408
  Serious: Yes (Life-Threatening, Other)
  Sender: ESPERION THERAPEUTICS
  Company Number: None

PATIENT

DRUGS (5)
  1. BEMPEDOIC ACID\EZETIMIBE [Suspect]
     Active Substance: BEMPEDOIC ACID\EZETIMIBE
     Indication: Type IIa hyperlipidaemia
     Dosage: 1 DOSAGE FORM (180/10MG), QD
     Route: 065
     Dates: start: 20241218
  2. LEVOTHYROXINE [Concomitant]
     Active Substance: LEVOTHYROXINE
     Indication: Product used for unknown indication
     Dosage: 28 UG, QD
     Route: 065
  3. TEGRETOL [Concomitant]
     Active Substance: CARBAMAZEPINE
     Indication: Product used for unknown indication
     Dosage: 56 MG, ONCE EVERY 8HR
     Route: 065
  4. CLOBAZAM [Concomitant]
     Active Substance: CLOBAZAM
     Indication: Product used for unknown indication
     Dosage: 10 MG, ONCE EVERY 12HR
     Route: 065
  5. EYEAZE [Concomitant]
     Indication: Eye operation
     Dosage: 10 ML, QID (APPLY UP TO FOUR TIMES A DAY, EVERY 6 HOURS)
     Route: 065
     Dates: start: 20250213

REACTIONS (2)
  - Seizure [Recovered/Resolved]
  - Somnolence [Recovered/Resolved]

NARRATIVE: CASE EVENT DATE: 20250101
